FAERS Safety Report 18204693 (Version 1)
Quarter: 2020Q3

REPORT INFORMATION
  Report Type: Spontaneous
  Country: US (occurrence: US)
  Receive Date: 20200827
  Receipt Date: 20200827
  Transmission Date: 20201103
  Serious: No
  Sender: FDA-Public Use
  Company Number: US-TEVA-2020-US-1821427

PATIENT

DRUGS (1)
  1. METOPROLOL SUCCINATE ER TEVA [Suspect]
     Active Substance: METOPROLOL SUCCINATE
     Route: 065

REACTIONS (6)
  - Blood pressure increased [Recovered/Resolved]
  - Fatigue [Unknown]
  - Drug ineffective [Unknown]
  - Product substitution issue [Unknown]
  - Headache [None]
  - Asthenia [Unknown]
